FAERS Safety Report 10886765 (Version 1)
Quarter: 2015Q1

REPORT INFORMATION
  Report Type: Report from Study
  Country: DE (occurrence: DE)
  Receive Date: 20150304
  Receipt Date: 20150304
  Transmission Date: 20150721
  Serious: Yes (Hospitalization)
  Sender: FDA-Public Use
  Company Number: DE-PFIZER INC-2015049854

PATIENT
  Age: 73 Year
  Sex: Male
  Weight: 67 kg

DRUGS (3)
  1. BENDAMUSTINE [Suspect]
     Active Substance: BENDAMUSTINE
     Dosage: 192.6 MG, UNK
     Dates: start: 20141010
  2. RITUXIMAB [Suspect]
     Active Substance: RITUXIMAB
     Dosage: 675 MG, UNK
     Dates: start: 20141112
  3. TEMSIROLIMUS [Suspect]
     Active Substance: TEMSIROLIMUS
     Dosage: 25 MG, UNK
     Dates: start: 20141011, end: 20150130

REACTIONS (1)
  - Febrile neutropenia [Recovered/Resolved]

NARRATIVE: CASE EVENT DATE: 20150203
